FAERS Safety Report 5798143-3 (Version None)
Quarter: 2008Q3

REPORT INFORMATION
  Report Type: 
  Country: None (occurrence: None)
  Receive Date: 20080702
  Receipt Date: 20080630
  Transmission Date: 20090109
  Serious: Yes (Other)
  Sender: FDA-Public Use
  Company Number: A0734053A

PATIENT
  Age: 55 Year
  Sex: Female
  Weight: 80.9 kg

DRUGS (6)
  1. ALLI [Suspect]
     Indication: WEIGHT LOSS DIET
     Dosage: 1CAP TWICE PER DAY
     Route: 048
     Dates: start: 20070101
  2. MULTI-VITAMIN [Concomitant]
     Dosage: 1TAB PER DAY
  3. VITAMIN B COMPLEX CAP [Concomitant]
     Dosage: 1TAB PER DAY
  4. ASCORBIC ACID [Concomitant]
  5. VITAMIN E [Concomitant]
  6. ZYRTEC [Concomitant]

REACTIONS (11)
  - ABDOMINAL PAIN LOWER [None]
  - BLOOD URINE PRESENT [None]
  - DIARRHOEA [None]
  - ESCHERICHIA URINARY TRACT INFECTION [None]
  - HAEMORRHAGE URINARY TRACT [None]
  - POLLAKIURIA [None]
  - THERAPEUTIC RESPONSE UNEXPECTED [None]
  - URETHRAL HAEMORRHAGE [None]
  - URINARY TRACT INFECTION [None]
  - URINE OUTPUT DECREASED [None]
  - WEIGHT INCREASED [None]
